FAERS Safety Report 8118006 (Version 4)
Quarter: 2016Q4

REPORT INFORMATION
  Report Type: Spontaneous
  Country: US (occurrence: US)
  Receive Date: 20110902
  Receipt Date: 20161014
  Transmission Date: 20170207
  Serious: No
  Sender: FDA-Public Use
  Company Number: US-PFIZER INC-2011201520

PATIENT
  Age: 62 Year
  Sex: Female
  Weight: 53.61 kg

DRUGS (3)
  1. LITHIUM. [Suspect]
     Active Substance: LITHIUM
     Dosage: UNK
  2. SEROQUEL [Suspect]
     Active Substance: QUETIAPINE FUMARATE
     Dosage: UNK
  3. PRISTIQ EXTENDED-RELEASE [Suspect]
     Active Substance: DESVENLAFAXINE SUCCINATE
     Indication: DEPRESSION
     Dosage: DAILY
     Route: 048

REACTIONS (13)
  - Blood parathyroid hormone increased [Recovered/Resolved]
  - Headache [Unknown]
  - Hot flush [Unknown]
  - Pyrexia [Unknown]
  - Periodic limb movement disorder [Not Recovered/Not Resolved]
  - Pain [Not Recovered/Not Resolved]
  - Intentional product misuse [Unknown]
  - Nausea [Unknown]
  - Feeling jittery [Unknown]
  - Peripheral swelling [Unknown]
  - Thyroid disorder [Unknown]
  - Fatigue [Unknown]
  - Arthritis [Unknown]

NARRATIVE: CASE EVENT DATE: 2011
